FAERS Safety Report 10412542 (Version 1)
Quarter: 2014Q3

REPORT INFORMATION
  Report Type: Spontaneous
  Country: US (occurrence: None)
  Receive Date: 20140826
  Receipt Date: 20140826
  Transmission Date: 20150326
  Serious: Yes (Other)
  Sender: FDA-Public Use
  Company Number: None

PATIENT
  Age: 35 Year
  Sex: Female

DRUGS (1)
  1. LABETALOL [Suspect]
     Active Substance: LABETALOL\LABETALOL HYDROCHLORIDE
     Indication: HYPERTENSION
     Route: 048
     Dates: start: 20140821, end: 20140823

REACTIONS (4)
  - Breast pain [None]
  - Breast discolouration [None]
  - Nipple pain [None]
  - Exposure during pregnancy [None]

NARRATIVE: CASE EVENT DATE: 20140821
